FAERS Safety Report 25396201 (Version 2)
Quarter: 2025Q2

REPORT INFORMATION
  Report Type: Spontaneous
  Country: US (occurrence: US)
  Receive Date: 20250604
  Receipt Date: 20250617
  Transmission Date: 20250717
  Serious: Yes (Death, Hospitalization)
  Sender: CALLIDITAS THERAPEUTICS AB
  Company Number: US-Calliditas-2025CAL01442

PATIENT
  Age: 72 Year
  Sex: Male

DRUGS (5)
  1. TARPEYO [Suspect]
     Active Substance: BUDESONIDE
     Indication: IgA nephropathy
     Route: 048
     Dates: start: 20250329
  2. METOPROLOL [Concomitant]
     Active Substance: METOPROLOL
  3. OXYCODONE [Concomitant]
     Active Substance: OXYCODONE
  4. WARFARIN [Concomitant]
     Active Substance: WARFARIN
  5. POTASSIUM [Concomitant]
     Active Substance: POTASSIUM

REACTIONS (4)
  - Rehabilitation therapy [Unknown]
  - Hospitalisation [Unknown]
  - Hospice care [Unknown]
  - Death [Fatal]
